FAERS Safety Report 4506832-3 (Version None)
Quarter: 2004Q4

REPORT INFORMATION
  Report Type: 
  Country: None (occurrence: None)
  Receive Date: 20041122
  Receipt Date: 20041112
  Transmission Date: 20050328
  Serious: Yes (Other)
  Sender: FDA-Public Use
  Company Number: 2004JP001966

PATIENT
  Age: 77 Year
  Sex: Female

DRUGS (4)
  1. SAWACILLIN [Suspect]
     Indication: INFECTION PROPHYLAXIS
     Dosage: 1000MG PER DAY
     Route: 048
     Dates: start: 20041026, end: 20041108
  2. AZULENE [Concomitant]
  3. GLUTAMINE [Concomitant]
  4. BIOFERMIN R [Concomitant]

REACTIONS (3)
  - HEPATIC FUNCTION ABNORMAL [None]
  - PYREXIA [None]
  - WHITE BLOOD CELL COUNT DECREASED [None]
